FAERS Safety Report 5410699-9 (Version None)
Quarter: 2007Q3

REPORT INFORMATION
  Report Type: 
  Country: None (occurrence: None)
  Receive Date: 20070810
  Receipt Date: 20061215
  Transmission Date: 20080115
  Serious: No
  Sender: FDA-Public Use
  Company Number: A0631745A

PATIENT
  Age: 47 Year
  Sex: Male

DRUGS (3)
  1. PAXIL CR [Suspect]
     Indication: DEPRESSION
     Dosage: 25MG PER DAY
     Route: 048
  2. AMBIEN [Concomitant]
  3. ALPRAZOLAM [Concomitant]

REACTIONS (1)
  - DRUG INEFFECTIVE [None]
